FAERS Safety Report 20864460 (Version 1)
Quarter: 2022Q2

REPORT INFORMATION
  Report Type: Spontaneous
  Country: AU (occurrence: AU)
  Receive Date: 20220524
  Receipt Date: 20220524
  Transmission Date: 20220721
  Serious: Yes (Hospitalization, Other)
  Sender: FDA-Public Use
  Company Number: AU-ATLANTIDE PHARMACEUTICALS AG-2022ATL000030

PATIENT
  Age: 49 Year
  Sex: Male

DRUGS (3)
  1. VALACYCLOVIR [Suspect]
     Active Substance: VALACYCLOVIR HYDROCHLORIDE
     Indication: Product used for unknown indication
     Dosage: 30 GRAM
     Route: 065
  2. OLANZAPINE [Concomitant]
     Active Substance: OLANZAPINE
     Indication: Product used for unknown indication
     Dosage: 2.5 GRAM
     Route: 065
  3. Venlafaxine-XR [Concomitant]
     Indication: Product used for unknown indication
     Dosage: 4.2 GRAM
     Route: 065

REACTIONS (4)
  - Crystalluria [Recovered/Resolved]
  - Thrombocytopenia [Unknown]
  - Acute kidney injury [Recovered/Resolved]
  - Overdose [Unknown]
